FAERS Safety Report 21583587 (Version 2)
Quarter: 2022Q4

REPORT INFORMATION
  Report Type: Report from Study
  Country: NL (occurrence: NL)
  Receive Date: 20221111
  Receipt Date: 20221215
  Transmission Date: 20230113
  Serious: Yes (Other)
  Sender: FDA-Public Use
  Company Number: NL-ARBOR PHARMACEUTICALS, LLC-NL-2022ARB002789

PATIENT
  Age: 68 Year
  Sex: Male

DRUGS (11)
  1. TRIPTODUR [Suspect]
     Active Substance: TRIPTORELIN
     Indication: Prostate cancer
     Dosage: STRENGTH: 22.5 MG (22.5 MG, 26 WEEK)
     Route: 030
     Dates: start: 20210608
  2. TRIPTODUR [Suspect]
     Active Substance: TRIPTORELIN
  3. TRIPTODUR [Suspect]
     Active Substance: TRIPTORELIN
  4. INSULIN GLARGINE [Concomitant]
     Active Substance: INSULIN GLARGINE
     Indication: Product used for unknown indication
     Dosage: 1XDD X 18 UNIT (1 DAY)
  5. METFORMIN [Concomitant]
     Active Substance: METFORMIN HYDROCHLORIDE
     Indication: Product used for unknown indication
     Dosage: 2XDD1 X 500 MG (500 MG, 12 HOUR)
  6. GLICLAZIDE [Concomitant]
     Active Substance: GLICLAZIDE
     Indication: Product used for unknown indication
     Dosage: 1XDD1 X 80 MG (80 MG, 1 DAY)
  7. DAPAGLIFLOZIN [Concomitant]
     Active Substance: DAPAGLIFLOZIN
     Indication: Product used for unknown indication
     Dosage: 1XDD1 X 10 MG (10 MG, 1 DAY)
  8. METOPROLOL [Concomitant]
     Active Substance: METOPROLOL
     Indication: Product used for unknown indication
     Dosage: 1XDD1 X 50 MG (50 MG, 1 DAY)
  9. AMLODIPINE [Concomitant]
     Active Substance: AMLODIPINE BESYLATE
     Indication: Product used for unknown indication
     Dosage: 1XDD1 X 10 MG (10 MG, 1 DAY)
  10. OXYBUTYNIN [Concomitant]
     Active Substance: OXYBUTYNIN
     Indication: Product used for unknown indication
     Dosage: 1XDD2 X 2.5 MG (2.5 MG, 2 DAY)
  11. ALLOPURINOL [Concomitant]
     Active Substance: ALLOPURINOL
     Indication: Product used for unknown indication
     Dosage: 1XDD1 X 300 MG (300 MG, 1 DAY)

REACTIONS (3)
  - Diabetes mellitus [Not Recovered/Not Resolved]
  - Malaise [Unknown]
  - Off label use [Unknown]

NARRATIVE: CASE EVENT DATE: 20210608
